FAERS Safety Report 5553551-0 (Version None)
Quarter: 2007Q4

REPORT INFORMATION
  Report Type: 
  Country: None (occurrence: None)
  Receive Date: 20071211
  Receipt Date: 20071203
  Transmission Date: 20080405
  Serious: Yes (Disabling)
  Sender: FDA-Public Use
  Company Number: 2007SP003526

PATIENT
  Age: 44 Year
  Sex: Male

DRUGS (4)
  1. LUNESTA [Suspect]
     Indication: INSOMNIA
     Dosage: 3 MG;HS;ORAL
     Route: 048
     Dates: start: 20070419
  2. MS CONTIN [Concomitant]
  3. ROBAXIN [Concomitant]
  4. ACETYLSALICYLIC ACID SRT [Concomitant]

REACTIONS (4)
  - AMNESIA [None]
  - IMPAIRED DRIVING ABILITY [None]
  - LEGAL PROBLEM [None]
  - ROAD TRAFFIC ACCIDENT [None]
